FAERS Safety Report 25879178 (Version 1)
Quarter: 2025Q4

REPORT INFORMATION
  Report Type: Spontaneous
  Country: EU (occurrence: EU)
  Receive Date: 20251003
  Receipt Date: 20251003
  Transmission Date: 20260118
  Serious: Yes (Other)
  Sender: MYLAN
  Company Number: None

PATIENT
  Age: 49 Year
  Sex: Male
  Weight: 50 kg

DRUGS (8)
  1. PREGABALIN [Suspect]
     Active Substance: PREGABALIN
     Indication: Product used for unknown indication
     Dosage: 1800 MILLIGRAM
     Dates: start: 20250507, end: 20250507
  2. PREGABALIN [Suspect]
     Active Substance: PREGABALIN
     Dosage: 1800 MILLIGRAM
     Dates: start: 20250507, end: 20250507
  3. PREGABALIN [Suspect]
     Active Substance: PREGABALIN
     Dosage: 1800 MILLIGRAM
     Route: 048
     Dates: start: 20250507, end: 20250507
  4. PREGABALIN [Suspect]
     Active Substance: PREGABALIN
     Dosage: 1800 MILLIGRAM
     Route: 048
     Dates: start: 20250507, end: 20250507
  5. PREGABALIN [Suspect]
     Active Substance: PREGABALIN
     Dosage: 1 DOSAGE FORM, QD (USUAL TTT: 1 TABLET AT NIGHT)
  6. PREGABALIN [Suspect]
     Active Substance: PREGABALIN
     Dosage: 1 DOSAGE FORM, QD (USUAL TTT: 1 TABLET AT NIGHT)
  7. PREGABALIN [Suspect]
     Active Substance: PREGABALIN
     Dosage: 1 DOSAGE FORM, QD (USUAL TTT: 1 TABLET AT NIGHT)
     Route: 048
  8. PREGABALIN [Suspect]
     Active Substance: PREGABALIN
     Dosage: 1 DOSAGE FORM, QD (USUAL TTT: 1 TABLET AT NIGHT)
     Route: 048

REACTIONS (4)
  - Substance use disorder [Unknown]
  - Drug use disorder [Unknown]
  - Abdominal pain [Unknown]
  - Miosis [Unknown]

NARRATIVE: CASE EVENT DATE: 20250507
